FAERS Safety Report 5010549-9 (Version None)
Quarter: 2006Q2

REPORT INFORMATION
  Report Type: 
  Country: None (occurrence: None)
  Receive Date: 20060523
  Receipt Date: 20060523
  Transmission Date: 20061013
  Serious: Yes (Other)
  Sender: FDA-Public Use
  Company Number: None

PATIENT
  Sex: Female

DRUGS (2)
  1. NAPHCON-A [Suspect]
     Indication: EYE ALLERGY
     Dosage: 1-2 DROPS PER EYE UP TO QID INTRAOCULAR
     Route: 031
     Dates: start: 20060505, end: 20060512
  2. OPTIVAR OPHTHALMIC EYE DROPS [Concomitant]

REACTIONS (3)
  - ANGLE CLOSURE GLAUCOMA [None]
  - INCORRECT DOSE ADMINISTERED [None]
  - MYDRIASIS [None]
